FAERS Safety Report 18467887 (Version 1)
Quarter: 2020Q4

REPORT INFORMATION
  Report Type: Spontaneous
  Country: US (occurrence: US)
  Receive Date: 20201104
  Receipt Date: 20201104
  Transmission Date: 20210114
  Serious: Yes (Life-Threatening, Hospitalization)
  Sender: FDA-Public Use
  Company Number: None

PATIENT
  Age: 57 Year
  Sex: Male
  Weight: 109 kg

DRUGS (1)
  1. ORBACTIV [Suspect]
     Active Substance: ORITAVANCIN
     Dates: start: 20200205, end: 20200205

REACTIONS (4)
  - Chest pain [None]
  - Chest discomfort [None]
  - Anxiety [None]
  - Pruritus [None]

NARRATIVE: CASE EVENT DATE: 20200205
